FAERS Safety Report 6683605-7 (Version None)
Quarter: 2010Q2

REPORT INFORMATION
  Report Type: 
  Country: None (occurrence: None)
  Receive Date: 20100415
  Receipt Date: 20100409
  Transmission Date: 20101027
  Serious: Yes (Other)
  Sender: FDA-Public Use
  Company Number: NL-JNJFOC-20100401968

PATIENT
  Sex: Female
  Weight: 70 kg

DRUGS (2)
  1. STELARA [Suspect]
     Indication: PSORIASIS
     Route: 058
  2. INFLIXIMAB [Suspect]
     Indication: DRUG USE FOR UNKNOWN INDICATION
     Route: 042

REACTIONS (1)
  - INTERSTITIAL LUNG DISEASE [None]
